FAERS Safety Report 21719914 (Version 1)
Quarter: 2022Q4

REPORT INFORMATION
  Report Type: Spontaneous
  Country: CH (occurrence: None)
  Receive Date: 20221213
  Receipt Date: 20221213
  Transmission Date: 20230113
  Serious: Yes (Other)
  Sender: FDA-Public Use
  Company Number: CH-ROCHE-3238873

PATIENT
  Age: 41 Year
  Sex: Male

DRUGS (13)
  1. POLIVY [Suspect]
     Active Substance: POLATUZUMAB VEDOTIN-PIIQ
     Indication: Diffuse large B-cell lymphoma
     Dosage: 5TH LINE SYSTEMIC TREATMENT, RITUXIMAB- POLA-BENDA
     Route: 065
     Dates: start: 20220928, end: 20221020
  2. MABTHERA [Suspect]
     Active Substance: RITUXIMAB
     Indication: Diffuse large B-cell lymphoma
     Dosage: 1ST SYSTEMIC TREATMENT, R-CHOP
     Route: 065
     Dates: start: 20220204, end: 20220318
  3. MABTHERA [Suspect]
     Active Substance: RITUXIMAB
     Dosage: 2ND LINE SYSTEMIC TREATMENT, R-ICE, BEAM + AUTO
     Route: 065
     Dates: start: 20220322, end: 20220715
  4. MABTHERA [Suspect]
     Active Substance: RITUXIMAB
     Dosage: THE 5TH LINE SYSTEMIC TREATMENT, RITUXIMAB-POLA-BENDA
     Route: 065
     Dates: start: 20220928, end: 20221020
  5. VENETOCLAX [Suspect]
     Active Substance: VENETOCLAX
     Indication: Diffuse large B-cell lymphoma
     Dosage: 3RD LINE SYSTEMIC TREATMENT, IBRUTINIB + VENETOCLAX
     Route: 065
     Dates: start: 20220715, end: 20220904
  6. CYCLOPHOSPHAMIDE\DOXORUBICIN\PREDNISONE\VINCRISTINE [Suspect]
     Active Substance: CYCLOPHOSPHAMIDE\DOXORUBICIN\PREDNISONE\VINCRISTINE
     Indication: Diffuse large B-cell lymphoma
     Dosage: 1ST SYSTEMIC TREATMENT, R-CHOP
     Route: 065
     Dates: start: 20220204, end: 20220318
  7. ETOPOSIDE [Suspect]
     Active Substance: ETOPOSIDE
     Indication: Diffuse large B-cell lymphoma
     Dosage: 2ND LINE SYSTEMIC TREATMENT, R-ICE, BEAM + AUTO
     Route: 065
     Dates: start: 20220322, end: 20220715
  8. CARBOPLATIN [Suspect]
     Active Substance: CARBOPLATIN
     Indication: Diffuse large B-cell lymphoma
     Dosage: 2ND LINE SYSTEMIC TREATMENT, R-ICE, BEAM + AUTO
     Route: 065
     Dates: start: 20220322, end: 20220715
  9. IFOSFAMIDE [Suspect]
     Active Substance: IFOSFAMIDE
     Indication: Diffuse large B-cell lymphoma
     Dosage: 2ND LINE SYSTEMIC TREATMENT, R-ICE, BEAM + AUTO
     Route: 065
     Dates: start: 20220322, end: 20220715
  10. BEAM [Suspect]
     Active Substance: SODIUM FLUORIDE
     Indication: Diffuse large B-cell lymphoma
     Dosage: 2ND LINE SYSTEMIC TREATMENT, R-ICE, BEAM + AUTO
     Route: 065
     Dates: start: 20220322, end: 20220715
  11. IBRUTINIB [Suspect]
     Active Substance: IBRUTINIB
     Indication: Diffuse large B-cell lymphoma
     Dosage: 3RD LINE SYSTEMIC TREATMENT, IBRUTINIB + VENETOCLAX
     Route: 065
     Dates: start: 20220715, end: 20220904
  12. YESCARTA [Suspect]
     Active Substance: AXICABTAGENE CILOLEUCEL
     Indication: Diffuse large B-cell lymphoma
     Dosage: 4TH LINE SYSTEMIC TREATMENT, YESCARTA
     Route: 065
     Dates: start: 20220905, end: 20220921
  13. BENDAMUSTINE [Suspect]
     Active Substance: BENDAMUSTINE
     Indication: Diffuse large B-cell lymphoma
     Dosage: 5TH LINE SYSTEMIC TREATMENT, RITUXIMAB- POLA-BENDA
     Route: 065
     Dates: start: 20220928, end: 20221020

REACTIONS (2)
  - Disease progression [Unknown]
  - Off label use [Unknown]

NARRATIVE: CASE EVENT DATE: 20220322
